FAERS Safety Report 6694326-9 (Version None)
Quarter: 2010Q2

REPORT INFORMATION
  Report Type: 
  Country: None (occurrence: None)
  Receive Date: 20100423
  Receipt Date: 20100416
  Transmission Date: 20101027
  Serious: Yes (Death, Hospitalization)
  Sender: FDA-Public Use
  Company Number: PL-PFIZER INC-2008059483

PATIENT
  Age: 62 Year
  Sex: Male
  Weight: 80 kg

DRUGS (9)
  1. IRINOTECAN HCL [Suspect]
     Indication: COLORECTAL CANCER
     Dosage: 367 MG, EVERY 2 WEEKS
     Dates: start: 20080703
  2. FLUOROURACIL [Suspect]
     Indication: COLORECTAL CANCER
     Dosage: 816 MG, EVERY 2 WEEKS
     Dates: start: 20080703
  3. FLUOROURACIL [Suspect]
     Dosage: 4894 MG, EVERY 2 WEEKS
     Dates: start: 20080703, end: 20080705
  4. SUNITINIB MALATE [Suspect]
     Indication: COLORECTAL CANCER
     Dosage: 37.5 MG, 1X/DAY
     Dates: start: 20080703, end: 20080715
  5. *CALCIUM FOLINATE [Suspect]
     Indication: COLORECTAL CANCER
     Dosage: 816 MG SOLUTION
     Dates: start: 20080703
  6. FENTANYL [Concomitant]
     Indication: PAIN
     Dosage: 50 UG CONTINUOSLY
  7. ONDANSETRON [Concomitant]
     Indication: VOMITING
     Dosage: 8 MG, 1 EVERY 8 HOURS
     Dates: start: 20080703, end: 20080705
  8. METOCLOPRAMIDE HYDROCHLORIDE [Concomitant]
     Indication: VOMITING
     Dosage: 20 MG, 1 EVERY 8 HOURS
     Dates: start: 20080703, end: 20080705
  9. ATROPINE [Concomitant]
     Indication: PREMEDICATION
     Dosage: 0.5 MG ONCE
     Dates: start: 20080703, end: 20080703

REACTIONS (1)
  - SEPSIS [None]
